FAERS Safety Report 6713192-6 (Version None)
Quarter: 2010Q2

REPORT INFORMATION
  Report Type: 
  Country: None (occurrence: None)
  Receive Date: 20100506
  Receipt Date: 20100423
  Transmission Date: 20101027
  Serious: Yes (Hospitalization, Other)
  Sender: FDA-Public Use
  Company Number: PHHY2010US26488

PATIENT
  Sex: Male

DRUGS (4)
  1. VALTURNA [Suspect]
     Dosage: UNK
  2. PLAVIX [Concomitant]
     Dosage: UNK
  3. CRESTOR [Concomitant]
     Dosage: UNK
  4. FLOMAX [Concomitant]
     Dosage: UNK

REACTIONS (5)
  - BLADDER MASS [None]
  - BLOOD URINE PRESENT [None]
  - NEPHROLITHIASIS [None]
  - RENAL PAIN [None]
  - URINARY BLADDER HAEMORRHAGE [None]
